FAERS Safety Report 4752822-5 (Version None)
Quarter: 2005Q3

REPORT INFORMATION
  Report Type: 
  Country: None (occurrence: None)
  Receive Date: 20050823
  Receipt Date: 20050122
  Transmission Date: 20060218
  Serious: Yes (Hospitalization, Other)
  Sender: FDA-Public Use
  Company Number: 2005006610

PATIENT
  Age: 66 Year
  Sex: Female
  Weight: 60.782 kg

DRUGS (14)
  1. NORVASC [Suspect]
     Indication: HYPERTENSION
     Dosage: 10 MG(5 MG,2 IN 1 D), ORAL
     Route: 048
     Dates: start: 20011201
  2. NICOTINIC ACID [Suspect]
     Indication: ILL-DEFINED DISORDER
  3. LEVOTHYROXINE SODIUM [Concomitant]
  4. LORAZEPAM [Concomitant]
  5. ATENOLOL [Concomitant]
  6. ACETYLSALICYLIC ACID SRT [Concomitant]
  7. ATORVASTATIN CALCIUM [Concomitant]
  8. SERTRALINE HCL [Concomitant]
  9. AMITRIPTYLINE HYDROCHLORIDE [Concomitant]
  10. ZOLPIDEM TARTRATE [Concomitant]
  11. RISEDRONATE SODIUM (RISEDRONATE SODIUM) [Concomitant]
  12. RANITIDINE HYDROCHLORIDE [Concomitant]
  13. TEGASEROD (TEGASEROD) [Concomitant]
  14. VALSARTAN [Concomitant]

REACTIONS (8)
  - AGITATION [None]
  - EAR DISCOMFORT [None]
  - ERYTHEMA [None]
  - FEELING HOT [None]
  - FLUSHING [None]
  - HEADACHE [None]
  - SYNCOPE [None]
  - UNEVALUABLE EVENT [None]
